FAERS Safety Report 7862025-3 (Version None)
Quarter: 2011Q4

REPORT INFORMATION
  Report Type: 
  Country: None (occurrence: None)
  Receive Date: 20111027
  Receipt Date: 20101122
  Transmission Date: 20120403
  Serious: No
  Sender: FDA-Public Use
  Company Number: US-AMGEN-USASP2010006150

PATIENT
  Age: 61 Year
  Sex: Female

DRUGS (2)
  1. ENBREL [Suspect]
     Indication: RHEUMATOID ARTHRITIS
     Dosage: 25 MG, 2 TIMES/WK
     Dates: start: 20060101
  2. TREXALL [Concomitant]

REACTIONS (4)
  - INJECTION SITE HAEMORRHAGE [None]
  - URINARY TRACT INFECTION [None]
  - CONJUNCTIVITIS INFECTIVE [None]
  - INJECTION SITE ERYTHEMA [None]
